FAERS Safety Report 13240632 (Version 2)
Quarter: 2017Q2

REPORT INFORMATION
  Report Type: Spontaneous
  Country: US (occurrence: US)
  Receive Date: 20170216
  Receipt Date: 20170407
  Transmission Date: 20170830
  Serious: Yes (Other)
  Sender: FDA-Public Use
  Company Number: US-BAYER-2017-029382

PATIENT
  Age: 82 Year
  Sex: Female

DRUGS (5)
  1. ULTRAVIST [Suspect]
     Active Substance: IOPROMIDE
     Indication: COMPUTERISED TOMOGRAM PELVIS
  2. INSULIN [Concomitant]
     Active Substance: INSULIN NOS
  3. ULTRAVIST [Suspect]
     Active Substance: IOPROMIDE
     Indication: RENAL CYST
  4. ULTRAVIST [Suspect]
     Active Substance: IOPROMIDE
     Indication: COMPUTERISED TOMOGRAM ABDOMEN
     Dosage: 90 ML, ONCE
     Dates: start: 20170206, end: 20170206
  5. ULTRAVIST [Suspect]
     Active Substance: IOPROMIDE
     Indication: PROTEINURIA

REACTIONS (11)
  - Nausea [Recovered/Resolved]
  - Chest pain [Recovered/Resolved]
  - Unresponsive to stimuli [None]
  - Contrast media reaction [None]
  - Vomiting [Recovered/Resolved]
  - Dyspnoea [Recovered/Resolved]
  - Throat tightness [None]
  - Contrast media allergy [Recovered/Resolved]
  - Dizziness [Recovered/Resolved]
  - Asthenia [Recovered/Resolved]
  - Cardio-respiratory arrest [None]

NARRATIVE: CASE EVENT DATE: 20170206
